FAERS Safety Report 8610638-3 (Version None)
Quarter: 2012Q3

REPORT INFORMATION
  Report Type: 
  Country: None (occurrence: None)
  Receive Date: 20120808
  Receipt Date: 20120726
  Transmission Date: 20120928
  Serious: Yes (Hospitalization)
  Sender: FDA-Public Use
  Company Number: JPI-P-021627

PATIENT
  Age: 28 Year
  Sex: Female
  Weight: 59.4212 kg

DRUGS (4)
  1. AMPHETAMINE, DEXTROAMPHETAMINE MIXED SALTS [Concomitant]
  2. XYREM [Suspect]
     Indication: CATAPLEXY
     Dosage: 6 GM (3 GM, 2 IN 1 D), ORAL; 6 GM (3 GM, 2 IN 1 D), ORAL
     Route: 048
     Dates: start: 20120223
  3. XYREM [Suspect]
     Indication: CATAPLEXY
     Dosage: 6 GM (3 GM, 2 IN 1 D), ORAL; 6 GM (3 GM, 2 IN 1 D), ORAL
     Route: 048
     Dates: start: 20120101
  4. DEXTROAMPHETAMINE [Concomitant]

REACTIONS (2)
  - SINUSITIS [None]
  - LUNG LOBECTOMY [None]
